FAERS Safety Report 8022771-8 (Version None)
Quarter: 2012Q1

REPORT INFORMATION
  Report Type: 
  Country: None (occurrence: None)
  Receive Date: 20120104
  Receipt Date: 20111227
  Transmission Date: 20120608
  Serious: Yes (Hospitalization, Other)
  Sender: FDA-Public Use
  Company Number: US-MERCK-1108USA00320

PATIENT
  Age: 62 Year
  Sex: Female

DRUGS (9)
  1. FOSAMAX [Suspect]
     Indication: OSTEOPENIA
     Route: 048
     Dates: start: 20030501, end: 20090101
  2. KLOR-CON [Concomitant]
     Indication: BLOOD POTASSIUM
     Route: 065
     Dates: start: 20030301
  3. LOPERAMIDE HYDROCHLORIDE [Concomitant]
     Indication: FUNCTIONAL GASTROINTESTINAL DISORDER
     Route: 065
     Dates: start: 20030301
  4. COUMADIN [Concomitant]
     Indication: ANTICOAGULANT THERAPY
     Route: 065
     Dates: start: 20030301
  5. AMITRIPTYLINE HYDROCHLORIDE [Concomitant]
     Indication: DEPRESSION
     Route: 065
     Dates: start: 20030301
  6. ALENDRONATE SODIUM [Suspect]
     Indication: OSTEOPOROSIS
     Route: 048
     Dates: start: 20090501, end: 20100423
  7. FOSAMAX [Suspect]
     Indication: OSTEOPOROSIS
     Route: 048
     Dates: start: 20030501, end: 20090101
  8. AMITRIPTYLINE HYDROCHLORIDE [Concomitant]
     Indication: ANXIETY
     Route: 065
     Dates: start: 20030301
  9. ALENDRONATE SODIUM [Suspect]
     Indication: OSTEOPENIA
     Route: 048
     Dates: start: 20090501, end: 20100423

REACTIONS (27)
  - OSTEONECROSIS OF JAW [None]
  - THYROID NEOPLASM [None]
  - DEPRESSION [None]
  - DEEP VEIN THROMBOSIS [None]
  - BLOOD PRESSURE INCREASED [None]
  - FEEDING TUBE COMPLICATION [None]
  - MALABSORPTION [None]
  - MALNUTRITION [None]
  - FUNGAEMIA [None]
  - ATRIOVENTRICULAR BLOCK FIRST DEGREE [None]
  - HYPERCOAGULATION [None]
  - ANGIOPATHY [None]
  - INFECTED VARICOSE VEIN [None]
  - HYPERTENSION [None]
  - INSOMNIA [None]
  - ABSCESS DRAINAGE [None]
  - DENTAL CARIES [None]
  - IMPAIRED HEALING [None]
  - OESOPHAGEAL STENOSIS [None]
  - ILEAL STENOSIS [None]
  - ANXIETY [None]
  - ANAEMIA [None]
  - CHEST PAIN [None]
  - BLOOD CHOLESTEROL INCREASED [None]
  - VERTIGO [None]
  - PULMONARY EMBOLISM [None]
  - TOOTH DISORDER [None]
